FAERS Safety Report 5103050-5 (Version None)
Quarter: 2006Q3

REPORT INFORMATION
  Report Type: 
  Country: None (occurrence: None)
  Receive Date: 20060907
  Receipt Date: 20060825
  Transmission Date: 20061208
  Serious: Yes (Death)
  Sender: FDA-Public Use
  Company Number: 14691

PATIENT
  Age: 43 Year
  Sex: Female

DRUGS (3)
  1. HYDROMORPHONE HCL [Suspect]
  2. MEPERIDINE HCL [Concomitant]
  3. DIAZEPAM [Concomitant]

REACTIONS (6)
  - ACCIDENTAL DEATH [None]
  - ASPHYXIA [None]
  - FALL [None]
  - NARCOTIC INTOXICATION [None]
  - PETECHIAE [None]
  - PULMONARY CONGESTION [None]
